FAERS Safety Report 11625404 (Version 2)
Quarter: 2015Q4

REPORT INFORMATION
  Report Type: Spontaneous
  Country: JP (occurrence: JP)
  Receive Date: 20151013
  Receipt Date: 20151117
  Transmission Date: 20160304
  Serious: Yes (Hospitalization, Other)
  Sender: FDA-Public Use
  Company Number: JP-APOTEX-2015AP013422

PATIENT
  Age: 30 Year
  Sex: Female
  Weight: 44.9 kg

DRUGS (10)
  1. PROGESTERONE. [Concomitant]
     Active Substance: PROGESTERONE
     Indication: PRODUCT USED FOR UNKNOWN INDICATION
     Dosage: UNK
     Route: 065
  2. PAXIL [Suspect]
     Active Substance: PAROXETINE HYDROCHLORIDE
     Indication: PANIC DISORDER
     Dosage: 12.5 MG, DAILY
     Route: 048
     Dates: start: 20140912
  3. PAXIL [Suspect]
     Active Substance: PAROXETINE HYDROCHLORIDE
     Indication: GENERALISED ANXIETY DISORDER
     Dosage: 10 MG, QD
     Route: 048
     Dates: end: 20141221
  4. RITODRINE HYDROCHLORIDE [Concomitant]
     Active Substance: RITODRINE HYDROCHLORIDE
     Indication: PRODUCT USED FOR UNKNOWN INDICATION
     Dosage: UNK
     Route: 065
     Dates: start: 20140918, end: 20141203
  5. RISPERIDONE. [Concomitant]
     Active Substance: RISPERIDONE
     Indication: PRODUCT USED FOR UNKNOWN INDICATION
     Dosage: 1 MG, UNK
     Route: 065
  6. ETIZOLAM [Concomitant]
     Active Substance: ETIZOLAM
     Indication: PANIC DISORDER
     Dosage: 0.5 UNK, UNK
     Route: 065
  7. TESTOSTERONE ENANTHATE. [Concomitant]
     Active Substance: TESTOSTERONE ENANTHATE
     Indication: PRODUCT USED FOR UNKNOWN INDICATION
     Dosage: UNK
     Route: 065
  8. ETIZOLAM [Concomitant]
     Active Substance: ETIZOLAM
     Dosage: 3 MG, UNK
     Route: 065
  9. ETIZOLAM [Concomitant]
     Active Substance: ETIZOLAM
     Dosage: 2 MG, UNK
     Route: 065
  10. OOPHORMIN LUTEUM [Concomitant]
     Indication: PRODUCT USED FOR UNKNOWN INDICATION
     Dosage: 125 MG, UNK
     Route: 065
     Dates: start: 20140918, end: 20141203

REACTIONS (7)
  - Breast discomfort [Unknown]
  - Panic attack [Unknown]
  - Overdose [Unknown]
  - Intentional self-injury [Unknown]
  - Premature labour [Unknown]
  - Abdominal pain [Unknown]
  - Exposure during pregnancy [Unknown]
